FAERS Safety Report 10394105 (Version 4)
Quarter: 2014Q4

REPORT INFORMATION
  Report Type: Report from Study
  Country: JP (occurrence: JP)
  Receive Date: 20140819
  Receipt Date: 20141114
  Transmission Date: 20150528
  Serious: Yes (Death, Life-Threatening, Hospitalization, Other)
  Sender: FDA-Public Use
  Company Number: PHHY2009JP40057

PATIENT
  Age: 78 Year
  Sex: Female
  Weight: 51 kg

DRUGS (7)
  1. ICL670A [Suspect]
     Active Substance: DEFERASIROX
     Indication: CHRONIC LYMPHOCYTIC LEUKAEMIA
     Dosage: 500 MG/DAY (10 MG/KG)
     Route: 048
     Dates: start: 20090122, end: 20090813
  2. MAGMITT [Concomitant]
     Active Substance: MAGNESIUM OXIDE
     Indication: PRODUCT USED FOR UNKNOWN INDICATION
     Dosage: 1000 MG, UNK
     Route: 048
  3. MARZULENE S [Concomitant]
     Active Substance: GLUTAMINE\SODIUM GUALENATE
     Indication: PRODUCT USED FOR UNKNOWN INDICATION
     Dosage: 3 DF, UNK
     Route: 048
  4. BLOOD TRANSFUSION, AUXILIARY PRODUCTS [Concomitant]
     Active Substance: WHOLE BLOOD
     Indication: PRODUCT USED FOR UNKNOWN INDICATION
     Dosage: UNK UKN, UNK
     Route: 065
  5. RED BLOOD CELLS, CONCENTRATED [Concomitant]
     Active Substance: HUMAN RED BLOOD CELL
     Indication: PRODUCT USED FOR UNKNOWN INDICATION
     Dosage: 2 U, EVERY FOUR WEEKS (AT A QUARTER OF 2 UNITS A WEEK)
     Route: 065
     Dates: start: 20090121, end: 20090411
  6. ICL670A [Suspect]
     Active Substance: DEFERASIROX
     Indication: IRON OVERLOAD
  7. VESICARE [Suspect]
     Active Substance: SOLIFENACIN SUCCINATE
     Indication: PRODUCT USED FOR UNKNOWN INDICATION
     Dosage: 5 MG, UNK
     Route: 048

REACTIONS (9)
  - Protein urine present [Recovered/Resolved]
  - Breast cancer [Fatal]
  - Rash [Recovering/Resolving]
  - Liver disorder [Recovered/Resolved]
  - Pyelonephritis [Recovering/Resolving]
  - Haemoglobin decreased [Recovered/Resolved]
  - Condition aggravated [Unknown]
  - Second primary malignancy [Unknown]
  - Blood alkaline phosphatase increased [Not Recovered/Not Resolved]

NARRATIVE: CASE EVENT DATE: 20090204
